FAERS Safety Report 7442569-9 (Version None)
Quarter: 2011Q2

REPORT INFORMATION
  Report Type: 
  Country: None (occurrence: None)
  Receive Date: 20110425
  Receipt Date: 20110425
  Transmission Date: 20111010
  Serious: Yes (Other)
  Sender: FDA-Public Use
  Company Number: None

PATIENT
  Age: 21 Year
  Sex: Male
  Weight: 56.4 kg

DRUGS (1)
  1. VANCOMYCIN [Suspect]
     Indication: INFECTION

REACTIONS (1)
  - FLUSHING [None]
